FAERS Safety Report 5402661-7 (Version None)
Quarter: 2007Q3

REPORT INFORMATION
  Report Type: 
  Country: None (occurrence: None)
  Receive Date: 20070730
  Receipt Date: 20070730
  Transmission Date: 20080115
  Serious: Yes (Other)
  Sender: FDA-Public Use
  Company Number: None

PATIENT
  Age: 18 Year
  Sex: Female
  Weight: 58.9676 kg

DRUGS (1)
  1. CHLOROQUINE PHOSPHATE [Suspect]
     Indication: MALARIA PROPHYLAXIS
     Dosage: 500 MG 1 WEEK
     Dates: start: 20070725, end: 20070727

REACTIONS (1)
  - RASH [None]
